FAERS Safety Report 10395993 (Version 1)
Quarter: 2014Q1

REPORT INFORMATION
  Report Type: Spontaneous
  Country: US (occurrence: None)
  Receive Date: 20130724
  Receipt Date: 20130724
  Transmission Date: 20141002
  Serious: No
  Sender: FDA-Public Use
  Company Number: PHEH2012US015845

PATIENT
  Sex: Female
  Weight: 99.79 kg

DRUGS (2)
  1. GILENYA (FTY) CAPSULE, 0.5MG [Suspect]
     Indication: MULTIPLE SCLEROSIS
     Route: 048
  2. COPAXONE (GLATIRAMER ACETATE) [Concomitant]

REACTIONS (3)
  - Memory impairment [None]
  - Concomitant disease aggravated [None]
  - Back pain [None]
